FAERS Safety Report 18507603 (Version 1)
Quarter: 2020Q4

REPORT INFORMATION
  Report Type: Spontaneous
  Country: US (occurrence: US)
  Receive Date: 20201116
  Receipt Date: 20201116
  Transmission Date: 20210114
  Serious: Yes (Other)
  Sender: FDA-Public Use
  Company Number: US-ELI_LILLY_AND_COMPANY-US202011003137

PATIENT

DRUGS (5)
  1. LISINOPRIL. [Suspect]
     Active Substance: LISINOPRIL
     Dosage: 40 MG, DAILY
     Route: 065
  2. HUMULIN R [Suspect]
     Active Substance: INSULIN HUMAN
     Indication: TYPE 1 DIABETES MELLITUS
     Dosage: UNK UNK, DAILY (20 OR 30 UNITS AT NIGHT)
     Route: 065
     Dates: start: 1980
  3. HUMULIN N [Suspect]
     Active Substance: INSULIN HUMAN
     Indication: TYPE 1 DIABETES MELLITUS
     Dosage: UNK UNK, UNKNOWN
     Route: 065
  4. HUMULIN N [Suspect]
     Active Substance: INSULIN HUMAN
     Dosage: UNK UNK, UNKNOWN
     Route: 065
     Dates: start: 2014
  5. LISINOPRIL. [Suspect]
     Active Substance: LISINOPRIL
     Indication: HYPERTENSION
     Dosage: 20 MG, DAILY
     Route: 065

REACTIONS (11)
  - Hypoglycaemic unconsciousness [Unknown]
  - Back pain [Unknown]
  - Bladder discomfort [Unknown]
  - Blood glucose increased [Unknown]
  - Neuropathy peripheral [Unknown]
  - Blood glucose decreased [Unknown]
  - Hypertension [Unknown]
  - Dysstasia [Unknown]
  - Restless legs syndrome [Unknown]
  - Cough [Unknown]
  - Gait disturbance [Unknown]
